FAERS Safety Report 17608123 (Version 2)
Quarter: 2020Q2

REPORT INFORMATION
  Report Type: Spontaneous
  Country: US (occurrence: US)
  Receive Date: 20200331
  Receipt Date: 20200505
  Transmission Date: 20200713
  Serious: Yes (Other)
  Sender: FDA-Public Use
  Company Number: US-BEH-2020115128

PATIENT
  Age: 67 Year
  Sex: Female

DRUGS (2)
  1. ZEMAIRA [Suspect]
     Active Substance: .ALPHA.1-PROTEINASE INHIBITOR HUMAN
     Dosage: 5084 MILLIGRAM, QW
     Route: 042
     Dates: start: 20200129
  2. ZEMAIRA [Suspect]
     Active Substance: .ALPHA.1-PROTEINASE INHIBITOR HUMAN
     Indication: ALPHA-1 ANTITRYPSIN DEFICIENCY
     Dosage: 5084 MILLIGRAM, QW
     Route: 042
     Dates: start: 20200128

REACTIONS (3)
  - Urinary tract infection [Unknown]
  - Ill-defined disorder [Unknown]
  - Ear infection [Unknown]

NARRATIVE: CASE EVENT DATE: 2020
